FAERS Safety Report 14018535 (Version 1)
Quarter: 2017Q3

REPORT INFORMATION
  Report Type: Spontaneous
  Country: US (occurrence: None)
  Receive Date: 20170928
  Receipt Date: 20170928
  Transmission Date: 20171128
  Serious: No
  Sender: FDA-Public Use
  Company Number: None

PATIENT
  Age: 66 Year
  Sex: Female
  Weight: 67.49 kg

DRUGS (2)
  1. VEMURAFENIB. [Concomitant]
     Active Substance: VEMURAFENIB
  2. INTRON A [Suspect]
     Active Substance: INTERFERON ALFA-2B
     Dates: end: 20120720

REACTIONS (2)
  - Keratoacanthoma [None]
  - Squamous cell carcinoma [None]

NARRATIVE: CASE EVENT DATE: 20130509
